FAERS Safety Report 5851835-X (Version None)
Quarter: 2008Q3

REPORT INFORMATION
  Report Type: 
  Country: None (occurrence: None)
  Receive Date: 20080813
  Receipt Date: 20070921
  Transmission Date: 20090109
  Serious: Yes (Other)
  Sender: FDA-Public Use
  Company Number: PHEH2007US12606

PATIENT

DRUGS (3)
  1. LOTENSIN [Suspect]
     Dosage: ORAL
     Route: 048
  2. TEKTURNA [Suspect]
     Dosage: 150 MG, ORAL
     Route: 048
  3. BENICAR [Suspect]

REACTIONS (1)
  - ANGIOEDEMA [None]
